FAERS Safety Report 9276975 (Version 2)
Quarter: 2013Q3

REPORT INFORMATION
  Report Type: Report from Study
  Country: HU (occurrence: HU)
  Receive Date: 20130507
  Receipt Date: 20130924
  Transmission Date: 20140515
  Serious: Yes (Hospitalization)
  Sender: FDA-Public Use
  Company Number: HU-PFIZER INC-2013087305

PATIENT
  Age: 41 Year
  Sex: Male
  Weight: 131 kg

DRUGS (2)
  1. TOFACITINIB CITRATE [Suspect]
     Indication: PSORIASIS
     Dosage: 10 MG, 2X/DAY
     Route: 048
     Dates: start: 20120222, end: 20130227
  2. PLACEBO [Suspect]
     Indication: PSORIASIS
     Dosage: TWICE DAILY
     Route: 048
     Dates: start: 20120222, end: 20130227

REACTIONS (1)
  - Appendicitis [Recovered/Resolved]
